FAERS Safety Report 4731719-0 (Version None)
Quarter: 2005Q3

REPORT INFORMATION
  Report Type: 
  Country: None (occurrence: None)
  Receive Date: 20050801
  Receipt Date: 20050801
  Transmission Date: 20060218
  Serious: No
  Sender: FDA-Public Use
  Company Number: None

PATIENT
  Age: 54 Year
  Sex: Male

DRUGS (2)
  1. TOPIRAMATE [Suspect]
     Indication: DEPRESSION
     Dosage: 200MG PO QHS
     Route: 048
  2. TOPIRAMATE [Suspect]
     Indication: SCHIZOPHRENIA
     Dosage: 200MG PO QHS
     Route: 048

REACTIONS (2)
  - CREATININE RENAL CLEARANCE DECREASED [None]
  - RASH [None]
